FAERS Safety Report 7101364-0 (Version None)
Quarter: 2010Q4

REPORT INFORMATION
  Report Type: 
  Country: None (occurrence: None)
  Receive Date: 20101115
  Receipt Date: 20100518
  Transmission Date: 20110411
  Serious: No
  Sender: FDA-Public Use
  Company Number: US-PFIZER INC-2009226960

PATIENT
  Sex: Female

DRUGS (2)
  1. MEDROL [Suspect]
     Dosage: UNK
  2. PREDNISONE [Suspect]
     Dosage: UNK

REACTIONS (2)
  - AGITATION [None]
  - POOR QUALITY SLEEP [None]
